FAERS Safety Report 4746755-8 (Version None)
Quarter: 2005Q3

REPORT INFORMATION
  Report Type: 
  Country: None (occurrence: None)
  Receive Date: 20050815
  Receipt Date: 20050803
  Transmission Date: 20060218
  Serious: Yes (Hospitalization)
  Sender: FDA-Public Use
  Company Number: 8011244

PATIENT
  Age: 85 Year
  Sex: Female
  Weight: 54 kg

DRUGS (10)
  1. KEPPRA [Suspect]
     Indication: EPILEPSY
     Dosage: 2000 MG / D PO
     Route: 048
     Dates: start: 20041119, end: 20050516
  2. KEPPRA [Suspect]
     Indication: EPILEPSY
     Dosage: 1000 MG/ D PO
     Route: 048
     Dates: start: 20050524
  3. TRILEPTAL [Suspect]
     Indication: EPILEPSY
     Dosage: PO
     Route: 048
     Dates: start: 20041119, end: 20050516
  4. SOPROL [Suspect]
     Dosage: 10 MG 1/D
     Dates: start: 20000630, end: 20050516
  5. AUGMENTIN '125' [Concomitant]
  6. MOPRAL [Concomitant]
  7. ZOLOFT [Concomitant]
  8. TAVANIC [Concomitant]
  9. FRAXIPARINE [Concomitant]
  10. ELECTROLYTE SOLUTIONS [Concomitant]

REACTIONS (6)
  - ANTICONVULSANT DRUG LEVEL INCREASED [None]
  - ATRIOVENTRICULAR BLOCK COMPLETE [None]
  - DRUG LEVEL ABOVE THERAPEUTIC [None]
  - FALL [None]
  - HYPONATRAEMIA [None]
  - SYNCOPE [None]
